FAERS Safety Report 5404729-8 (Version None)
Quarter: 2007Q3

REPORT INFORMATION
  Report Type: 
  Country: None (occurrence: None)
  Receive Date: 20070801
  Receipt Date: 20070717
  Transmission Date: 20080115
  Serious: Yes (Other)
  Sender: FDA-Public Use
  Company Number: 2007EU001630

PATIENT
  Sex: Male

DRUGS (1)
  1. PROGRAF [Suspect]
     Dosage: ORAL
     Route: 048

REACTIONS (3)
  - CONFUSIONAL STATE [None]
  - GENERAL PHYSICAL CONDITION ABNORMAL [None]
  - INTENTIONAL DRUG MISUSE [None]
